FAERS Safety Report 5419492-4 (Version None)
Quarter: 2007Q3

REPORT INFORMATION
  Report Type: 
  Country: None (occurrence: None)
  Receive Date: 20070718
  Receipt Date: 20070418
  Transmission Date: 20080115
  Serious: Yes (Hospitalization, Other)
  Sender: FDA-Public Use
  Company Number: 2006099682

PATIENT
  Age: 49 Year
  Sex: Female
  Weight: 77.1 kg

DRUGS (2)
  1. CELEBREX [Suspect]
     Indication: OSTEOARTHRITIS
     Dosage: 200 MG ONCE/TWICE
     Dates: start: 20000101
  2. VIOXX [Suspect]
     Dates: start: 19990520, end: 19990711

REACTIONS (1)
  - MYOCARDIAL INFARCTION [None]
